FAERS Safety Report 20553739 (Version 1)
Quarter: 2022Q1

REPORT INFORMATION
  Report Type: Spontaneous
  Country: JP (occurrence: JP)
  Receive Date: 20220304
  Receipt Date: 20220304
  Transmission Date: 20220423
  Serious: Yes (Other)
  Sender: FDA-Public Use
  Company Number: JP-SLATE RUN PHARMACEUTICALS-22JP000932

PATIENT

DRUGS (17)
  1. VORICONAZOLE [Interacting]
     Active Substance: VORICONAZOLE
     Indication: Bronchopulmonary aspergillosis
     Dosage: 250 MILLIGRAM (4.9 MG/ KG), BID, ADMINISTERED AT 06:00 AND 18:00
     Route: 048
  2. VORICONAZOLE [Interacting]
     Active Substance: VORICONAZOLE
     Dosage: 250 MILLIGRAM (4.9 MG/ KG), BID, AT 06:00 AND 18:00, JEJUNOSTOMY TUBE
  3. VORICONAZOLE [Interacting]
     Active Substance: VORICONAZOLE
     Dosage: 200 MG TWICE DAILY AT 06:00 AND 18:00, VIA JEJUNOSTOMY TUBE
     Route: 048
  4. VORICONAZOLE [Interacting]
     Active Substance: VORICONAZOLE
     Dosage: 200 MILLIGRAM (3.8 MG/KG), BID AT 06:00 AND 18:00
     Route: 048
  5. UNSPECIFIED INGREDIENT [Interacting]
     Active Substance: UNSPECIFIED INGREDIENT
     Indication: Enteral nutrition
     Dosage: 8 H CONTINUOUS INFUSION, FROM 08:00 TO 16:00
  6. UNSPECIFIED INGREDIENT [Interacting]
     Active Substance: UNSPECIFIED INGREDIENT
     Dosage: CLAMPED AT 17:00, 1 H BEFORE VRCZ ADMINISTRATION AT 18:00, STARTED AT 19:00, 1 H AFTER THE ADMINISTR
  7. UNSPECIFIED INGREDIENT [Interacting]
     Active Substance: UNSPECIFIED INGREDIENT
     Dosage: STOPPED 1 H BEFORE AND 1 H AFTER VRCZ ADMINISTRATION
  8. UNSPECIFIED INGREDIENT [Interacting]
     Active Substance: UNSPECIFIED INGREDIENT
     Dosage: 15 H CONTINUOUS DURING THE DAYTIME, FROM 07:00 TO 22: 00
  9. UNSPECIFIED INGREDIENT [Concomitant]
     Active Substance: UNSPECIFIED INGREDIENT
     Indication: Oesophageal carcinoma
     Dosage: UNK
  10. MAGNESIUM OXIDE [Concomitant]
     Active Substance: MAGNESIUM OXIDE
     Indication: Product used for unknown indication
     Dosage: 500 MILLIGRAM, TID, PREOPERATIVE PERIOD
  11. MICAFUNGIN [Concomitant]
     Active Substance: MICAFUNGIN
     Indication: Bronchopulmonary aspergillosis
     Dosage: 150 MILLIGRAM, QD
  12. LANSOPRAZOLE [Concomitant]
     Active Substance: LANSOPRAZOLE
     Indication: Product used for unknown indication
     Dosage: 15 MILLIGRAM, QD, POSTOPERATIVE PERIOD
  13. SODIUM CHLORIDE [Concomitant]
     Active Substance: SODIUM CHLORIDE
     Indication: Product used for unknown indication
     Dosage: 2.5 GRAM, TID, POSTOPERATIVE PERIOD
  14. MOSAPRIDE CITRATE DIHYDRATE [Concomitant]
     Active Substance: MOSAPRIDE CITRATE DIHYDRATE
     Indication: Product used for unknown indication
     Dosage: 5 MILLIGRAM, TID, POSTOPERATIVE PERIOD
  15. RIKKUNSHITO [ATRACTYLODES LANCEA RHIZOME;CITRUS AURANTIUM PEEL;GLYCYRR [Concomitant]
     Indication: Product used for unknown indication
     Dosage: 2.5 GRAM, TID, POSTOPERATIVE PERIOD
  16. BROMHEXINE HYDROCHLORIDE [Concomitant]
     Active Substance: BROMHEXINE HYDROCHLORIDE
     Indication: Product used for unknown indication
     Dosage: 4 MILLIGRAM, TID, POSTOPERATIVE PERIOD
  17. ACOTIAMIDE HYDROCHLORIDE HYDRATE [Concomitant]
     Indication: Product used for unknown indication
     Dosage: 100 MILLIGRAM, TID, POSTOPERATIVE PERIOD

REACTIONS (5)
  - Gamma-glutamyltransferase increased [Recovered/Resolved]
  - Drug interaction [Unknown]
  - Drug level decreased [Recovered/Resolved]
  - Diarrhoea [Unknown]
  - Nausea [Unknown]
